FAERS Safety Report 5738458-8 (Version None)
Quarter: 2008Q2

REPORT INFORMATION
  Report Type: 
  Country: None (occurrence: None)
  Receive Date: 20080513
  Receipt Date: 20080430
  Transmission Date: 20081010
  Serious: Yes (Other)
  Sender: FDA-Public Use
  Company Number: 2008BI011466

PATIENT
  Age: 57 Year
  Sex: Female
  Weight: 68.0396 kg

DRUGS (3)
  1. TYSABRI [Suspect]
     Indication: MULTIPLE SCLEROSIS
     Dosage: 300 MG; QM; IV
     Route: 042
     Dates: start: 20060901
  2. AVONEX [Concomitant]
  3. PROVIGIL [Concomitant]

REACTIONS (7)
  - BACK PAIN [None]
  - BLOOD CHOLESTEROL INCREASED [None]
  - CONVULSION [None]
  - FALL [None]
  - FATIGUE [None]
  - HIGH DENSITY LIPOPROTEIN DECREASED [None]
  - URINARY TRACT INFECTION [None]
